FAERS Safety Report 24569880 (Version 1)
Quarter: 2024Q4

REPORT INFORMATION
  Report Type: Spontaneous
  Country: US (occurrence: US)
  Receive Date: 20241031
  Receipt Date: 20241031
  Transmission Date: 20250115
  Serious: No
  Sender: ROCHE
  Company Number: US-ROCHE-10000118403

PATIENT
  Sex: Female
  Weight: 54.43 kg

DRUGS (1)
  1. ACTEMRA [Suspect]
     Active Substance: TOCILIZUMAB
     Indication: Giant cell arteritis
     Route: 058
     Dates: start: 20241010

REACTIONS (5)
  - Product complaint [Unknown]
  - Product complaint [Unknown]
  - Device defective [Unknown]
  - Wrong technique in device usage process [Unknown]
  - No adverse event [Unknown]
